FAERS Safety Report 16260013 (Version 1)
Quarter: 2019Q2

REPORT INFORMATION
  Report Type: Spontaneous
  Country: US (occurrence: US)
  Receive Date: 20190430
  Receipt Date: 20190430
  Transmission Date: 20190711
  Serious: Yes (Hospitalization)
  Sender: FDA-Public Use
  Company Number: None

PATIENT
  Age: 35 Year
  Weight: 182 kg

DRUGS (1)
  1. PACLITAXEL. [Suspect]
     Active Substance: PACLITAXEL
     Indication: THYROID CANCER
     Dates: start: 20190321, end: 20190321

REACTIONS (7)
  - Tremor [None]
  - Hyperhidrosis [None]
  - Dyspnoea [None]
  - Burning sensation [None]
  - Unresponsive to stimuli [None]
  - Retching [None]
  - Seizure [None]

NARRATIVE: CASE EVENT DATE: 20190321
